FAERS Safety Report 17923034 (Version 1)
Quarter: 2020Q2

REPORT INFORMATION
  Report Type: Report from Study
  Country: IN (occurrence: IN)
  Receive Date: 20200622
  Receipt Date: 20200622
  Transmission Date: 20200714
  Serious: Yes (Other)
  Sender: FDA-Public Use
  Company Number: PHHY2019IN202249

PATIENT
  Age: 60 Year
  Sex: Male
  Weight: 57 kg

DRUGS (2)
  1. TRAVATAN [Suspect]
     Active Substance: TRAVOPROST
     Indication: GLAUCOMA
     Dosage: 2.5 ML, QD
     Route: 047
     Dates: start: 20190618
  2. AZOPT [Suspect]
     Active Substance: BRINZOLAMIDE
     Indication: GLAUCOMA
     Dosage: UNK
     Route: 047

REACTIONS (4)
  - Typhoid fever [Recovered/Resolved]
  - Pyrexia [Recovered/Resolved]
  - Intraocular pressure increased [Not Recovered/Not Resolved]
  - Blood glucose increased [Recovered/Resolved]

NARRATIVE: CASE EVENT DATE: 20200517
